FAERS Safety Report 7025202-X (Version None)
Quarter: 2010Q3

REPORT INFORMATION
  Report Type: 
  Country: None (occurrence: None)
  Receive Date: 20100916
  Receipt Date: 20100728
  Transmission Date: 20110219
  Serious: Yes (Other)
  Sender: FDA-Public Use
  Company Number: DKLU1063344

PATIENT
  Age: 62 Year
  Sex: Male

DRUGS (2)
  1. SABRIL [Suspect]
     Indication: CONVULSION
     Dosage: 500 MG MILLIGRAM(S), 2 IN 1 D, ORAL; 500 MG MILLIGRAM(S), 1 IN 1 D, ORAL
     Route: 048
     Dates: start: 20100501
  2. DILANTIN [Concomitant]

REACTIONS (3)
  - CONVULSION [None]
  - DYSARTHRIA [None]
  - FATIGUE [None]
